FAERS Safety Report 9836902 (Version 1)
Quarter: 2014Q1

REPORT INFORMATION
  Report Type: Spontaneous
  Country: US (occurrence: US)
  Receive Date: 20140123
  Receipt Date: 20140123
  Transmission Date: 20141002
  Serious: No
  Sender: FDA-Public Use
  Company Number: US-PFIZER INC-2014016922

PATIENT
  Age: 54 Year
  Sex: Female

DRUGS (3)
  1. XELJANZ [Suspect]
     Indication: RHEUMATOID ARTHRITIS
     Dosage: 5 MG, 2X/DAY
     Route: 048
     Dates: start: 201310, end: 201310
  2. LOTREL [Concomitant]
     Dosage: 10 MG, UNK
  3. TRAVATAN Z [Concomitant]
     Dosage: 0.004 %, UNK

REACTIONS (1)
  - Alopecia [Unknown]
